FAERS Safety Report 7984272 (Version 2)
Quarter: 2012Q4

REPORT INFORMATION
  Report Type: 
  Country: ES (occurrence: ES)
  Receive Date: 20110609
  Receipt Date: 20121205
  Transmission Date: 20130627
  Serious: Yes (Death, Hospitalization)
  Sender: FDA-Public Use
  Company Number: ES-BAXTER-2011BH017839

PATIENT
  Age: 68 None
  Sex: Male

DRUGS (2)
  1. EXTRANEAL [Suspect]
     Indication: PERITONEAL DIALYSIS
     Route: 033
     Dates: end: 20110524
  2. EXTRANEAL [Suspect]
     Route: 033
     Dates: start: 20100930, end: 20110410

REACTIONS (6)
  - Peritoneal cloudy effluent [Fatal]
  - Pyrexia [Fatal]
  - Abdominal pain [Fatal]
  - Complications of transplanted kidney [Fatal]
  - Urinary tract infection pseudomonal [Unknown]
  - Death [Fatal]
